FAERS Safety Report 8579291-1 (Version None)
Quarter: 2012Q3

REPORT INFORMATION
  Report Type: 
  Country: None (occurrence: None)
  Receive Date: 20120808
  Receipt Date: 20120806
  Transmission Date: 20120928
  Serious: Yes (Other)
  Sender: FDA-Public Use
  Company Number: US-PFIZER INC-2012191539

PATIENT
  Age: 52 Year
  Sex: Female
  Weight: 104 kg

DRUGS (7)
  1. HUMALOG [Concomitant]
     Dosage: UNK
  2. TOPAMAX [Concomitant]
     Dosage: UNK
  3. AVAPRO [Concomitant]
     Dosage: UNK
  4. PLAVIX [Concomitant]
     Dosage: UNK
  5. LANTUS [Concomitant]
     Dosage: UNK
  6. LYRICA [Suspect]
     Indication: DIABETIC NEUROPATHY
     Dosage: 100 MG, 3X/DAY
     Route: 048
     Dates: start: 20090101
  7. CRESTOR [Concomitant]
     Dosage: UNK

REACTIONS (6)
  - BLOOD GLUCOSE INCREASED [None]
  - BLINDNESS UNILATERAL [None]
  - MACULAR DEGENERATION [None]
  - GLAUCOMA [None]
  - VISUAL IMPAIRMENT [None]
  - MIGRAINE [None]
